FAERS Safety Report 8523007-1 (Version None)
Quarter: 2012Q3

REPORT INFORMATION
  Report Type: 
  Country: None (occurrence: None)
  Receive Date: 20120720
  Receipt Date: 20120712
  Transmission Date: 20120928
  Serious: Yes (Death, Life-Threatening, Hospitalization)
  Sender: FDA-Public Use
  Company Number: JP-GE HEALTHCARE MEDICAL DIAGNOSTICS-OMPQ-NO-1204S-0470

PATIENT
  Sex: Female

DRUGS (7)
  1. ALLOPURINOL [Concomitant]
  2. ASPIRIN [Concomitant]
  3. CARVEDILOL [Concomitant]
  4. FUROSEMIDE [Concomitant]
  5. OMNIPAQUE 140 [Suspect]
     Indication: RECTAL CANCER
     Route: 042
     Dates: start: 20120425, end: 20120425
  6. ISOSORBIDE DINITRATE [Concomitant]
  7. CRESTOR [Concomitant]

REACTIONS (6)
  - RIB FRACTURE [None]
  - MULTI-ORGAN FAILURE [None]
  - SHOCK [None]
  - INFECTIOUS PERITONITIS [None]
  - HAEMORRHAGE [None]
  - ANAEMIA [None]
